FAERS Safety Report 6738970-9 (Version None)
Quarter: 2010Q2

REPORT INFORMATION
  Report Type: 
  Country: None (occurrence: None)
  Receive Date: 20100521
  Receipt Date: 20100506
  Transmission Date: 20101027
  Serious: Yes (Other)
  Sender: FDA-Public Use
  Company Number: 2010SCPR000668

PATIENT
  Age: 42 Year
  Sex: Female
  Weight: 68 kg

DRUGS (9)
  1. MECLIZINE HCL [Suspect]
     Indication: VERTIGO
  2. CHANTIX [Suspect]
     Indication: SMOKING CESSATION THERAPY
     Dosage: 0.5 MG, ONCE DAILY, ORAL, 1 MG, ORAL
     Route: 048
     Dates: start: 20100101
  3. CHANTIX [Suspect]
     Indication: SMOKING CESSATION THERAPY
     Dosage: 0.5 MG, ONCE DAILY, ORAL, 1 MG, ORAL
     Route: 048
     Dates: start: 20100101
  4. GEODON [Concomitant]
  5. TOPAMAX [Concomitant]
  6. VISTARIL [Concomitant]
  7. LORTAB [Concomitant]
  8. FLEXERIL [Concomitant]
  9. ALBUTEROL [Concomitant]

REACTIONS (5)
  - ASTHENIA [None]
  - DECREASED APPETITE [None]
  - DEPRESSION [None]
  - DRUG INEFFECTIVE [None]
  - NAUSEA [None]
